FAERS Safety Report 5444646-0 (Version None)
Quarter: 2007Q3

REPORT INFORMATION
  Report Type: 
  Country: None (occurrence: None)
  Receive Date: 20070906
  Receipt Date: 20070315
  Transmission Date: 20080115
  Serious: Yes (Other)
  Sender: FDA-Public Use
  Company Number: A0635392A

PATIENT
  Age: 51 Year
  Sex: Male
  Weight: 126.4 kg

DRUGS (16)
  1. REQUIP [Suspect]
     Indication: PARKINSON'S DISEASE
     Dosage: 3MG THREE TIMES PER DAY
     Route: 048
  2. METOPROLOL SUCCINATE [Concomitant]
     Indication: BLOOD PRESSURE
     Dosage: 100MG IN THE MORNING
  3. AMANTADINE HCL [Concomitant]
     Indication: PARKINSON'S DISEASE
     Dosage: 100MG PER DAY
  4. HYDROCHLOROTHIAZIDE [Concomitant]
     Indication: BLOOD PRESSURE
     Dosage: 12.5MG IN THE MORNING
  5. METFORMIN HCL [Concomitant]
     Dosage: 2550MG PER DAY
  6. GLIPIZIDE [Concomitant]
     Dosage: 10MG TWICE PER DAY
  7. ROSIGLITAZONE [Concomitant]
     Dosage: 8MG PER DAY
  8. SIMVASTATIN [Concomitant]
     Dosage: 80MG AT NIGHT
  9. VARDENAFIL [Concomitant]
     Indication: ERECTILE DYSFUNCTION
     Dosage: 20MG AS REQUIRED
  10. ALLOPURINOL [Concomitant]
     Indication: RENAL DISORDER
     Dosage: 200MG IN THE MORNING
  11. ACARBOSE [Concomitant]
     Dosage: 50MG THREE TIMES PER DAY
     Route: 065
  12. CYMBALTA [Concomitant]
     Indication: DEPRESSION
     Dosage: 30MG PER DAY
  13. WELLBUTRIN [Concomitant]
     Dosage: 200MG TWICE PER DAY
  14. CLONAZEPAM [Concomitant]
     Indication: ANXIETY
     Dosage: 1MG AS REQUIRED
  15. TEMAZEPAM [Concomitant]
     Indication: SLEEP DISORDER
     Dosage: 30MG AS REQUIRED
  16. ABILIFY [Concomitant]
     Indication: BIPOLAR DISORDER
     Dosage: 15MG PER DAY

REACTIONS (3)
  - DRUG INTERACTION [None]
  - HALLUCINATION, TACTILE [None]
  - HALLUCINATION, VISUAL [None]
